FAERS Safety Report 7618565-5 (Version None)
Quarter: 2011Q3

REPORT INFORMATION
  Report Type: 
  Country: None (occurrence: None)
  Receive Date: 20110718
  Receipt Date: 20110713
  Transmission Date: 20111222
  Serious: Yes (Hospitalization, Other)
  Sender: FDA-Public Use
  Company Number: US-PFIZER INC-2011159254

PATIENT
  Sex: Female
  Weight: 54.42 kg

DRUGS (2)
  1. DILANTIN [Suspect]
     Indication: GRAND MAL CONVULSION
     Dosage: 100 MG, 5X/DAY
     Route: 048
     Dates: end: 20110101
  2. XANAX [Concomitant]
     Indication: DEPRESSION

REACTIONS (2)
  - DRUG LEVEL DECREASED [None]
  - CONVULSION [None]
